FAERS Safety Report 8493729-X (Version None)
Quarter: 2012Q3

REPORT INFORMATION
  Report Type: 
  Country: None (occurrence: None)
  Receive Date: 20120706
  Receipt Date: 20120625
  Transmission Date: 20120928
  Serious: Yes (Other)
  Sender: FDA-Public Use
  Company Number: CHPA2012IL014122

PATIENT
  Sex: Male

DRUGS (5)
  1. PLAVIX [Concomitant]
     Dosage: UNK, UNK
  2. ENALAPRIL MALEATE [Concomitant]
     Dosage: UNK, UNK
  3. CARDILOC [Concomitant]
     Dosage: UNK, UNK
  4. NICOTINE [Suspect]
     Indication: SMOKING CESSATION THERAPY
     Dosage: 1 DF, ONCE/SINGLE
     Dates: start: 20120625
  5. ASPIRIN [Concomitant]
     Dosage: UNK, UNK

REACTIONS (1)
  - SYNCOPE [None]
